FAERS Safety Report 5756579-0 (Version None)
Quarter: 2008Q2

REPORT INFORMATION
  Report Type: 
  Country: None (occurrence: None)
  Receive Date: 20080603
  Receipt Date: 20080520
  Transmission Date: 20081010
  Serious: Yes (Hospitalization, Other)
  Sender: FDA-Public Use
  Company Number: US-ELI_LILLY_AND_COMPANY-US200805004061

PATIENT
  Age: 47 Year
  Sex: Male

DRUGS (2)
  1. OLANZAPINE [Suspect]
     Indication: MANIA
     Dosage: 10 MG, UNK
     Route: 048
  2. DIPHENHYDRAMINE HCL [Concomitant]
     Indication: PROPHYLAXIS
     Dosage: 50 MG, UNK
     Route: 048

REACTIONS (3)
  - ATRIAL FIBRILLATION [None]
  - FALL [None]
  - TOOTH FRACTURE [None]
